FAERS Safety Report 10224327 (Version 1)
Quarter: 2014Q2

REPORT INFORMATION
  Report Type: Spontaneous
  Country: US (occurrence: US)
  Receive Date: 20140609
  Receipt Date: 20140609
  Transmission Date: 20141212
  Serious: No
  Sender: FDA-Public Use
  Company Number: US-PFIZER INC-2014157048

PATIENT
  Age: 30 Year
  Sex: Male
  Weight: 63.5 kg

DRUGS (1)
  1. LYRICA [Suspect]
     Indication: DIABETIC NEUROPATHY
     Dosage: 300 MG (BY TAKING 100MG CAPSULE TWO IN MORNING AND ONE), UNK
     Route: 048
     Dates: start: 2008, end: 20140603

REACTIONS (1)
  - Pain [Not Recovered/Not Resolved]
